FAERS Safety Report 9761210 (Version 2)
Quarter: 2014Q1

REPORT INFORMATION
  Report Type: Spontaneous
  Country: FR (occurrence: None)
  Receive Date: 20131212
  Receipt Date: 20140129
  Transmission Date: 20141002
  Serious: Yes (Hospitalization)
  Sender: FDA-Public Use
  Company Number: DSM-2013-01153

PATIENT
  Age: 83 Year
  Sex: Male

DRUGS (9)
  1. OLMETEC [Suspect]
     Indication: HYPERTENSION
     Route: 048
     Dates: start: 20111025, end: 201304
  2. INEXIUM [Suspect]
     Route: 048
  3. KARDEGIC (ACETYLSALICYLATE LYSINE) (ACETYLSALICYLATE LYSINE)? [Concomitant]
  4. OMEPRAZOLE (OMEPRAZOLE) (OMEPRAZOLE) [Concomitant]
  5. ANAFRANIL (CLOMIPRAMINE HYDROCHLORIDE) (CLOMIPRAMINE HYDROCHLORIDE)? [Concomitant]
  6. TRANXENE (CLORAZEPATE DIPOTASSIUM) (CLORAZEPATE DIPOTASSIUM) [Concomitant]
  7. NEULEPTIL (PERICIAZINE) (PERICIAZINE) [Concomitant]
  8. TANGANIL (ACETLLEUCINE) (ACETYLLEUCINE) [Concomitant]
  9. VOLTARENE (DICLOFENAC SODIUM) (DICLOFENAC SODIUM) [Concomitant]

REACTIONS (3)
  - Colitis microscopic [None]
  - Intestinal villi atrophy [None]
  - Cachexia [None]
